FAERS Safety Report 4970487-4 (Version None)
Quarter: 2006Q2

REPORT INFORMATION
  Report Type: 
  Country: None (occurrence: None)
  Receive Date: 20060411
  Receipt Date: 20060411
  Transmission Date: 20061013
  Serious: No
  Sender: FDA-Public Use
  Company Number: None

PATIENT
  Age: 62 Year
  Sex: Male
  Weight: 142 kg

DRUGS (1)
  1. CANCIDAS [Suspect]
     Dosage: 50 MG Q24H IV BOLUS
     Route: 040
     Dates: start: 20060321, end: 20060401

REACTIONS (1)
  - PANCREATITIS [None]
